FAERS Safety Report 10187760 (Version 1)
Quarter: 2014Q2

REPORT INFORMATION
  Report Type: Spontaneous
  Country: US (occurrence: US)
  Receive Date: 20140522
  Receipt Date: 20140522
  Transmission Date: 20141212
  Serious: No
  Sender: FDA-Public Use
  Company Number: US-SA-2013SA101798

PATIENT
  Age: 58 Year
  Sex: Female

DRUGS (13)
  1. LANTUS SOLOSTAR [Suspect]
     Indication: TYPE 2 DIABETES MELLITUS
     Dosage: TAKEN FROM: OVER A YEAR DOSE:30 UNIT(S)
     Route: 051
  2. SOLOSTAR [Concomitant]
  3. METFORMIN [Concomitant]
  4. NATEGLINIDE [Concomitant]
  5. GABAPENTIN [Concomitant]
  6. FENOFIBRATE [Concomitant]
  7. SIMVASTATIN [Concomitant]
  8. METOPROLOL [Concomitant]
  9. AMITRIPTYLINE [Concomitant]
  10. TIZANIDINE [Concomitant]
  11. LEVOTHYROXINE [Concomitant]
  12. PERCOCET [Concomitant]
  13. MORPHINE SULFATE [Concomitant]

REACTIONS (2)
  - Breast discharge [Not Recovered/Not Resolved]
  - Hyperhidrosis [Not Recovered/Not Resolved]
